FAERS Safety Report 5924753-6 (Version None)
Quarter: 2008Q4

REPORT INFORMATION
  Report Type: 
  Country: None (occurrence: None)
  Receive Date: 20081017
  Receipt Date: 20081003
  Transmission Date: 20090506
  Serious: Yes (Hospitalization)
  Sender: FDA-Public Use
  Company Number: POMP-1000339

PATIENT
  Age: 16 Month
  Sex: Female
  Weight: 7.2 kg

DRUGS (1)
  1. MYOZYME [Suspect]
     Indication: GLYCOGEN STORAGE DISEASE TYPE II
     Dosage: 150 MG, Q2W, INTRAVENOUS
     Route: 042
     Dates: start: 20080626

REACTIONS (2)
  - DEHYDRATION [None]
  - RESPIRATORY FAILURE [None]
